FAERS Safety Report 20707629 (Version 1)
Quarter: 2022Q2

REPORT INFORMATION
  Report Type: Spontaneous
  Country: US (occurrence: US)
  Receive Date: 20220413
  Receipt Date: 20220413
  Transmission Date: 20220721
  Serious: No
  Sender: FDA-Public Use
  Company Number: US-AMGEN-USASP2022061440

PATIENT
  Age: 65 Year

DRUGS (2)
  1. REPATHA [Suspect]
     Active Substance: EVOLOCUMAB
     Indication: Product used for unknown indication
     Dosage: UNK UNK, Q3WK OR EVERY MONTH
     Route: 065
  2. REPATHA [Suspect]
     Active Substance: EVOLOCUMAB
     Dosage: UNK UNK, Q3WK OR EVERY MONTH
     Route: 065

REACTIONS (2)
  - Off label use [Unknown]
  - Low density lipoprotein decreased [Unknown]
